FAERS Safety Report 23045389 (Version 2)
Quarter: 2023Q4

REPORT INFORMATION
  Report Type: Spontaneous
  Country: AR (occurrence: AR)
  Receive Date: 20231009
  Receipt Date: 20231110
  Transmission Date: 20240110
  Serious: Yes (Other)
  Sender: FDA-Public Use
  Company Number: AR-MYLANLABS-2023M1105797

PATIENT
  Age: 48 Year
  Sex: Female
  Weight: 53 kg

DRUGS (2)
  1. RELPAX [Suspect]
     Active Substance: ELETRIPTAN HYDROBROMIDE
     Indication: Migraine
     Dosage: 40 MILLIGRAM
     Route: 065
  2. RELPAX [Suspect]
     Active Substance: ELETRIPTAN HYDROBROMIDE
     Dosage: UNK, TWICE A WEEK
     Route: 065
     Dates: start: 2016

REACTIONS (2)
  - Migraine [Unknown]
  - General physical health deterioration [Unknown]
